FAERS Safety Report 20114608 (Version 1)
Quarter: 2021Q4

REPORT INFORMATION
  Report Type: Spontaneous
  Country: US (occurrence: US)
  Receive Date: 20211125
  Receipt Date: 20211125
  Transmission Date: 20220304
  Serious: No
  Sender: FDA-Public Use
  Company Number: US-SANOFI-00856188

PATIENT

DRUGS (1)
  1. CERDELGA [Suspect]
     Active Substance: ELIGLUSTAT
     Indication: Gaucher^s disease
     Dosage: 336 MG, QD
     Route: 065

REACTIONS (7)
  - Heart rate irregular [Unknown]
  - Gait disturbance [Unknown]
  - Constipation [Unknown]
  - Rash [Unknown]
  - Palpitations [Unknown]
  - Dizziness [Unknown]
  - Wrong dose [Unknown]
